FAERS Safety Report 4716665-0 (Version None)
Quarter: 2005Q3

REPORT INFORMATION
  Report Type: 
  Country: None (occurrence: None)
  Receive Date: 20050714
  Receipt Date: 20050630
  Transmission Date: 20060218
  Serious: Yes (Other)
  Sender: FDA-Public Use
  Company Number: 2005095330

PATIENT
  Sex: Female
  Weight: 66.6788 kg

DRUGS (17)
  1. ROGAINE [Suspect]
     Indication: HYPOTRICHOSIS
     Dosage: UNSPECIFIED AMOUNT 1D, TOPICAL
     Route: 061
     Dates: end: 20050601
  2. ESOMEPRAZOLE (ESOMEPRAZOLE) [Concomitant]
  3. UDECYLENIC ACID (UNDECYLENIC ACID) [Concomitant]
  4. CHOLROXYLENOL (CHOROXYLENOL) [Concomitant]
  5. SALICYLIC ACID (SALICYLIC ACID) [Concomitant]
  6. WHITE SOFT PARAFFIN (WHITE SOFT PARAFFIN) [Concomitant]
  7. FLUOCINOLONE ACETONIDE (FLUOCINOLONE ACETONIDE) [Concomitant]
  8. TRETINOIN [Concomitant]
  9. HYDROQUINONE (HYDROQUINONE) [Concomitant]
     Indication: HYPOTRICHOSIS
     Dosage: AMOUNT QD, TOPICAL
     Route: 061
     Dates: end: 20050601
  10. ESOMEPRAZOLE (ESOMEPRAZOLE) [Concomitant]
  11. UNDECYLENIC ACID (UNDECYLENIC ACID) [Concomitant]
  12. CHOLOROXYLENOL (CHLOROXYLENOL) [Concomitant]
  13. SALICYLIC ACID (SALICYLIC ACID) [Concomitant]
  14. WHITE SOFT PARAFFIN (WHITE SOFT PARAFFIN) [Concomitant]
  15. FLUOCINOLONE ACETONIDE (FLUOCINOLONE ACETONIDE) [Concomitant]
  16. TRETINOIN [Concomitant]
  17. HYDROQUINONE (HYDROQUINONE) [Concomitant]

REACTIONS (5)
  - ALOPECIA [None]
  - CONDITION AGGRAVATED [None]
  - GASTRIC DISORDER [None]
  - PRECANCEROUS CELLS PRESENT [None]
  - SYSTEMIC LUPUS ERYTHEMATOSUS [None]
